FAERS Safety Report 5033330-3 (Version None)
Quarter: 2006Q2

REPORT INFORMATION
  Report Type: 
  Country: None (occurrence: None)
  Receive Date: 20060515
  Receipt Date: 20060227
  Transmission Date: 20061013
  Serious: No
  Sender: FDA-Public Use
  Company Number: S06-USA-00713-01

PATIENT
  Age: 83 Year
  Sex: Female

DRUGS (1)
  1. NAMENDA [Suspect]
     Dates: start: 20060101, end: 20060301

REACTIONS (2)
  - CONDITION AGGRAVATED [None]
  - DRUG INEFFECTIVE [None]
